FAERS Safety Report 10220683 (Version 1)
Quarter: 2014Q2

REPORT INFORMATION
  Report Type: Spontaneous
  Country: AU (occurrence: None)
  Receive Date: 20140604
  Receipt Date: 20140604
  Transmission Date: 20141212
  Serious: Yes (Hospitalization)
  Sender: FDA-Public Use
  Company Number: FK201402089

PATIENT
  Age: 69 Year
  Sex: Male
  Weight: 74.6 kg

DRUGS (10)
  1. PACLITAXEL 6MG/ML CONCENTRATE FOR SOLUTION FOR INFUSION (PACLITAXEL) (PACLITAXEL) [Suspect]
     Indication: LUNG NEOPLASM MALIGNANT
     Dosage: 15 ML DOSE, INTRAVENEOUS (NOT OTHERWISE SPECIFIED)
     Route: 042
     Dates: start: 20140520, end: 20140520
  2. SPIRIVA [Concomitant]
  3. VENTOLIN (SALBUTAMOL) [Concomitant]
  4. SERETIDE (SERETIDE) [Concomitant]
  5. PRADAXA (DABIGATRAN ETEXILATE MESILATE) [Concomitant]
  6. DOXYCYCLINE (DOXYCYCLINE) [Concomitant]
  7. ATACAND (CANDESARTAN CILEXETIL) [Concomitant]
  8. LASIX (FUROSEMIDE) [Concomitant]
  9. ACIMAX (OMEPRAZOLE MAGNESIUM) [Concomitant]
  10. PHENERGAN (PROMETHAZINE) [Concomitant]

REACTIONS (1)
  - Respiratory arrest [None]
